FAERS Safety Report 12160210 (Version 1)
Quarter: 2016Q1

REPORT INFORMATION
  Report Type: Spontaneous
  Country: US (occurrence: US)
  Receive Date: 20160308
  Receipt Date: 20160308
  Transmission Date: 20160526
  Serious: No
  Sender: FDA-Public Use
  Company Number: US-SMITH AND NEPHEW, INC-2015SMT00500

PATIENT
  Age: 72 Year
  Sex: Female
  Weight: 92.97 kg

DRUGS (26)
  1. COLLAGENASE SANTYL [Suspect]
     Active Substance: COLLAGENASE CLOSTRIDIUM HISTOLYTICUM
     Dosage: UNK, ONCE
     Route: 047
     Dates: start: 20151030, end: 20151030
  2. SUCRALFATE. [Concomitant]
     Active Substance: SUCRALFATE
  3. CHLORDIAZEPOXIDE/CLIDINIUM [Concomitant]
     Active Substance: CHLORDIAZEPOXIDE\CLIDINIUM
  4. LEVOTHYROXINE. [Concomitant]
     Active Substance: LEVOTHYROXINE
  5. ATENOLOL. [Concomitant]
     Active Substance: ATENOLOL
  6. TYLENOL [Concomitant]
     Active Substance: ACETAMINOPHEN
  7. VITAMIN B12 [Concomitant]
     Active Substance: CYANOCOBALAMIN
  8. CITALOPRAM [Concomitant]
     Active Substance: CITALOPRAM HYDROBROMIDE
  9. PULMICORT TURBUHALER [Concomitant]
     Active Substance: BUDESONIDE
  10. MAGNESIUM [Concomitant]
     Active Substance: MAGNESIUM
  11. IRON [Concomitant]
     Active Substance: IRON
  12. COLLAGENASE SANTYL [Suspect]
     Active Substance: COLLAGENASE CLOSTRIDIUM HISTOLYTICUM
     Indication: SKIN ULCER
     Dosage: UNK UNK, 1X/DAY
     Route: 061
     Dates: start: 201510
  13. PROAIR HFA [Concomitant]
     Active Substance: ALBUTEROL SULFATE
     Dosage: UNK, AS NEEDED
  14. BUPROPION HCL [Concomitant]
     Active Substance: BUPROPION HYDROCHLORIDE
  15. ROPINIROLE. [Concomitant]
     Active Substance: ROPINIROLE
  16. SIMVASTATIN. [Concomitant]
     Active Substance: SIMVASTATIN
  17. LOSARTAN. [Concomitant]
     Active Substance: LOSARTAN
  18. TRIAMTERENE. [Concomitant]
     Active Substance: TRIAMTERENE
  19. ASA [Concomitant]
     Active Substance: ASPIRIN
     Dosage: 81 MG, UNK
  20. MONTELUKAST [Concomitant]
     Active Substance: MONTELUKAST SODIUM
  21. PROBIOTIC (UNSPECIFIED) [Concomitant]
  22. PANTOPRAZOLE [Concomitant]
     Active Substance: PANTOPRAZOLE SODIUM
  23. FLUTICASONE PROPIONATE NASAL SPRAY [Concomitant]
     Active Substance: FLUTICASONE PROPIONATE
     Dosage: UNK, AS NEEDED
  24. FUROSEMIDE. [Concomitant]
     Active Substance: FUROSEMIDE
  25. FISH OIL [Concomitant]
     Active Substance: FISH OIL
  26. VITAMIN B-6 [Concomitant]
     Active Substance: PYRIDOXINE

REACTIONS (3)
  - Vision blurred [Recovered/Resolved]
  - Ocular hyperaemia [Recovered/Resolved]
  - Accidental exposure to product [Recovered/Resolved]

NARRATIVE: CASE EVENT DATE: 20151030
